FAERS Safety Report 9785118 (Version 1)
Quarter: 2013Q4

REPORT INFORMATION
  Report Type: Spontaneous
  Country: US (occurrence: US)
  Receive Date: 20131227
  Receipt Date: 20131227
  Transmission Date: 20140711
  Serious: Yes (Other)
  Sender: FDA-Public Use
  Company Number: US-CELGENEUS-163-21880-13123788

PATIENT
  Sex: Female
  Weight: 83.54 kg

DRUGS (1)
  1. REVLIMID [Suspect]
     Indication: MONOCLONAL GAMMOPATHY
     Dosage: 10 MILLIGRAM
     Route: 048
     Dates: start: 201311

REACTIONS (3)
  - Anxiety [Unknown]
  - Blood glucose decreased [Unknown]
  - Depression [Unknown]
